FAERS Safety Report 20447398 (Version 1)
Quarter: 2022Q1

REPORT INFORMATION
  Report Type: Report from Study
  Country: CA (occurrence: CA)
  Receive Date: 20220209
  Receipt Date: 20220209
  Transmission Date: 20220424
  Serious: Yes (Other)
  Sender: FDA-Public Use
  Company Number: CA-JNJFOC-20220210590

PATIENT
  Age: 62 Year
  Sex: Male
  Weight: 110.2 kg

DRUGS (1)
  1. REMICADE [Suspect]
     Active Substance: INFLIXIMAB
     Indication: Colitis ulcerative
     Dosage: ON 02-FEB-2022, THE PATIENT RECEIVED 74TH INFLIXIMAB, RECOMBINANT OF 600 MG?ADDITIONAL THERAPY START
     Route: 042
     Dates: start: 20121201

REACTIONS (3)
  - Squamous cell carcinoma of skin [Unknown]
  - Frequent bowel movements [Unknown]
  - General physical health deterioration [Unknown]

NARRATIVE: CASE EVENT DATE: 20220119
